FAERS Safety Report 9729506 (Version 2)
Quarter: 2015Q3

REPORT INFORMATION
  Report Type: Spontaneous
  Country: US (occurrence: US)
  Receive Date: 20131204
  Receipt Date: 20150804
  Transmission Date: 20151125
  Serious: No
  Sender: FDA-Public Use
  Company Number: US-GILEAD-2009-0022053

PATIENT
  Age: 48 Year
  Sex: Male
  Weight: 77.11 kg

DRUGS (7)
  1. COUMADIN [Concomitant]
     Active Substance: WARFARIN SODIUM
  2. NORVIR [Concomitant]
     Active Substance: RITONAVIR
  3. KALETRA [Concomitant]
     Active Substance: LOPINAVIR\RITONAVIR
  4. LETAIRIS [Suspect]
     Active Substance: AMBRISENTAN
     Indication: PULMONARY ARTERIAL HYPERTENSION
     Route: 048
     Dates: start: 20090504
  5. ZERIT [Concomitant]
     Active Substance: STAVUDINE
  6. ZIAGEN [Concomitant]
     Active Substance: ABACAVIR SULFATE
  7. TRUVADA [Concomitant]
     Active Substance: EMTRICITABINE\TENOFOVIR DISOPROXIL FUMARATE

REACTIONS (1)
  - Nasal congestion [Unknown]
